FAERS Safety Report 4934731-1 (Version None)
Quarter: 2006Q1

REPORT INFORMATION
  Report Type: 
  Country: None (occurrence: None)
  Receive Date: 20060303
  Receipt Date: 20051206
  Transmission Date: 20060701
  Serious: Yes (Hospitalization)
  Sender: FDA-Public Use
  Company Number: 2005161927

PATIENT
  Age: 63 Year
  Sex: Male

DRUGS (5)
  1. IRINOTECAN HCL [Suspect]
     Indication: NON-SMALL CELL LUNG CANCER
     Dosage: 135 MG, CYCLICAL), INTRAVENOUS
     Route: 042
     Dates: start: 20050928, end: 20051029
  2. TEGAFUR/GIMERACIL/OTERACIL POTASSIUM (TEGAFUR/GIMERACIL/OTERACIL POTAS [Suspect]
     Indication: NON-SMALL CELL LUNG CANCER
     Dosage: 75 MG IN THE MORNING AND 60 MG/EVENING), ORAL; SEE IMAGE
     Route: 048
     Dates: start: 20051019, end: 20051101
  3. TEGAFUR/GIMERACIL/OTERACIL POTASSIUM (TEGAFUR/GIMERACIL/OTERACIL POTAS [Suspect]
     Indication: NON-SMALL CELL LUNG CANCER
     Dosage: 75 MG IN THE MORNING AND 60 MG/EVENING), ORAL; SEE IMAGE
     Route: 048
     Dates: start: 20050928, end: 20051110
  4. NARTOGRASTIM (NARTOGRASTIM) [Suspect]
     Indication: ILL-DEFINED DISORDER
     Dosage: 100 MCG, 1 IN 1 D, SUBCUTANEOUS
     Route: 058
     Dates: start: 20051105, end: 20051107
  5. LEVOFLOXACIN [Concomitant]

REACTIONS (7)
  - DYSPNOEA [None]
  - EOSINOPHIL COUNT INCREASED [None]
  - HYPOXIA [None]
  - INTERSTITIAL LUNG DISEASE [None]
  - LEUKOPENIA [None]
  - LYMPHOCYTE COUNT INCREASED [None]
  - PYREXIA [None]
